FAERS Safety Report 20947959 (Version 3)
Quarter: 2022Q3

REPORT INFORMATION
  Report Type: Report from Study
  Country: PR (occurrence: PR)
  Receive Date: 20220611
  Receipt Date: 20220713
  Transmission Date: 20221027
  Serious: Yes (Hospitalization, Other)
  Sender: FDA-Public Use
  Company Number: PR-ABBVIE-22K-131-4428969-00

PATIENT
  Age: 14 Year
  Sex: Male
  Weight: 35 kg

DRUGS (11)
  1. HUMIRA [Suspect]
     Active Substance: ADALIMUMAB
     Indication: Crohn^s disease
     Route: 058
     Dates: start: 202108, end: 202108
  2. HUMIRA [Suspect]
     Active Substance: ADALIMUMAB
     Route: 058
     Dates: start: 202108
  3. IMURAN [Suspect]
     Active Substance: AZATHIOPRINE
     Indication: Crohn^s disease
     Dosage: 50 MILLIGRAMS ON TUESDAYS, 25 MILLIGRAMS DAILY ALL OTHER DAYS
     Route: 048
     Dates: start: 2018, end: 202108
  4. METHOTREXATE [Suspect]
     Active Substance: METHOTREXATE
     Indication: Crohn^s disease
     Route: 065
  5. MEDROL [Suspect]
     Active Substance: METHYLPREDNISOLONE
     Indication: Crohn^s disease
     Route: 048
  6. PFIZER-BIONTECH COVID-19 VACCINE [Concomitant]
     Active Substance: TOZINAMERAN
     Indication: COVID-19 immunisation
     Dosage: FIRST DOSE
     Route: 030
     Dates: start: 20210523, end: 20210523
  7. PFIZER-BIONTECH COVID-19 VACCINE [Concomitant]
     Active Substance: TOZINAMERAN
     Dosage: SECOND DOSE
     Route: 030
     Dates: start: 20210613, end: 20210613
  8. PFIZER-BIONTECH COVID-19 VACCINE [Concomitant]
     Active Substance: TOZINAMERAN
     Dosage: THIRD DOSE
     Route: 030
     Dates: start: 20211227, end: 20211227
  9. VITAMIN D [Concomitant]
     Active Substance: VITAMIN D NOS
     Indication: Supplementation therapy
     Route: 048
     Dates: start: 2017
  10. LEVOCARNITINE [Concomitant]
     Active Substance: LEVOCARNITINE
     Indication: Muscle tone disorder
     Route: 048
     Dates: start: 2017
  11. CALCIUM [Concomitant]
     Active Substance: CALCIUM
     Indication: Supplementation therapy
     Route: 048
     Dates: start: 2021

REACTIONS (25)
  - Frequent bowel movements [Not Recovered/Not Resolved]
  - Fatigue [Not Recovered/Not Resolved]
  - Blood cholesterol decreased [Recovered/Resolved]
  - Frequent bowel movements [Recovering/Resolving]
  - Weight decreased [Recovering/Resolving]
  - Axial spondyloarthritis [Recovered/Resolved]
  - Hypoosmolar state [Recovered/Resolved]
  - Malnutrition [Recovered/Resolved]
  - Haematochezia [Recovering/Resolving]
  - Fear of disease [Recovered/Resolved]
  - Osteoporosis [Recovered/Resolved]
  - Mucous stools [Unknown]
  - Sacroiliitis [Recovered/Resolved]
  - C-reactive protein increased [Recovered/Resolved]
  - Gastrointestinal inflammation [Unknown]
  - Endoscopy abnormal [Unknown]
  - Albumin globulin ratio decreased [Recovered/Resolved]
  - Hyponatraemia [Recovered/Resolved]
  - Complement factor C3 [Recovered/Resolved]
  - Flatulence [Recovered/Resolved]
  - Anxiety [Recovered/Resolved]
  - Pyrexia [Recovered/Resolved]
  - Vomiting [Not Recovered/Not Resolved]
  - Diarrhoea [Recovered/Resolved]
  - Proctalgia [Recovered/Resolved]

NARRATIVE: CASE EVENT DATE: 20220101
